FAERS Safety Report 6521651-4 (Version None)
Quarter: 2009Q4

REPORT INFORMATION
  Report Type: 
  Country: None (occurrence: None)
  Receive Date: 20091230
  Receipt Date: 20091218
  Transmission Date: 20100525
  Serious: Yes (Other)
  Sender: FDA-Public Use
  Company Number: PHHY2009DE57741

PATIENT
  Sex: Female

DRUGS (1)
  1. EXTAVIA [Suspect]
     Indication: MULTIPLE SCLEROSIS
     Dosage: 1 ML/ EVERY OTHER DAY
     Route: 058
     Dates: start: 20090720

REACTIONS (2)
  - GAIT DISTURBANCE [None]
  - MYALGIA [None]
